FAERS Safety Report 8520068-0 (Version None)
Quarter: 2012Q3

REPORT INFORMATION
  Report Type: 
  Country: None (occurrence: None)
  Receive Date: 20120719
  Receipt Date: 20120713
  Transmission Date: 20120928
  Serious: No
  Sender: FDA-Public Use
  Company Number: US-PFIZER INC-2012144180

PATIENT
  Sex: Female

DRUGS (4)
  1. MELOXICAM [Suspect]
     Indication: PAIN
     Dosage: 7.5 MG, 1X/DAY
     Route: 048
     Dates: start: 20120416, end: 20120421
  2. TRAMADOL HCL [Suspect]
     Indication: PAIN
     Dosage: 50 MG, 3X/DAY, PRN
     Route: 048
     Dates: start: 20110610
  3. IBUPROFEN [Suspect]
     Indication: PAIN
     Dosage: 400 MG, 2X/DAY
  4. IBUPROFEN [Suspect]
     Dosage: 800 MG, 3X/DAY
     Route: 048
     Dates: start: 20120626

REACTIONS (1)
  - DRUG INEFFECTIVE [None]
